FAERS Safety Report 8850181 (Version 1)
Quarter: 2012Q4

REPORT INFORMATION
  Report Type: 
  Country: DK (occurrence: DK)
  Receive Date: 20121019
  Receipt Date: 20121019
  Transmission Date: 20130627
  Serious: Yes (Disabling)
  Sender: FDA-Public Use
  Company Number: DK-GLAXOSMITHKLINE-B0838750A

PATIENT
  Sex: Male
  Weight: 80 kg

DRUGS (1)
  1. DERMOVAT [Suspect]
     Indication: ECZEMA
     Dosage: 2APP Per day
     Route: 061
     Dates: start: 20070828

REACTIONS (1)
  - Chorioretinopathy [Not Recovered/Not Resolved]
